FAERS Safety Report 25020955 (Version 2)
Quarter: 2025Q1

REPORT INFORMATION
  Report Type: Spontaneous
  Country: CN (occurrence: CN)
  Receive Date: 20250227
  Receipt Date: 20250303
  Transmission Date: 20250409
  Serious: Yes (Other)
  Sender: BEIGENE
  Company Number: CN-BEIGENE-BGN-2025-002947

PATIENT
  Age: 56 Year
  Weight: 60 kg

DRUGS (7)
  1. TISLELIZUMAB [Suspect]
     Active Substance: TISLELIZUMAB
     Indication: Vaginal cancer
     Dosage: 200 MILLIGRAM, Q3WK
  2. TISLELIZUMAB [Suspect]
     Active Substance: TISLELIZUMAB
     Dosage: 200 MILLIGRAM, Q3WK
     Route: 041
  3. TISLELIZUMAB [Suspect]
     Active Substance: TISLELIZUMAB
     Dosage: 200 MILLIGRAM, Q3WK
     Route: 041
  4. TISLELIZUMAB [Suspect]
     Active Substance: TISLELIZUMAB
     Dosage: 200 MILLIGRAM, Q3WK
  5. CISPLATIN [Suspect]
     Active Substance: CISPLATIN
     Indication: Vaginal cancer
  6. CISPLATIN [Suspect]
     Active Substance: CISPLATIN
  7. PACLITAXEL [Concomitant]
     Active Substance: PACLITAXEL
     Indication: Vaginal cancer

REACTIONS (1)
  - Liver injury [Recovering/Resolving]
